FAERS Safety Report 4621517-0 (Version None)
Quarter: 2005Q1

REPORT INFORMATION
  Report Type: 
  Country: None (occurrence: None)
  Receive Date: 20050328
  Receipt Date: 20031125
  Transmission Date: 20050727
  Serious: No
  Sender: FDA-Public Use
  Company Number: 10123

PATIENT
  Age: 58 Year
  Sex: Male

DRUGS (4)
  1. METHOTREXATE [Suspect]
     Dosage: 10 MG WEEKLY;
     Dates: start: 19960401
  2. INDOMETHACIN [Concomitant]
  3. PREDNISONE [Concomitant]
  4. BMS188667 [Concomitant]

REACTIONS (1)
  - HYPOPHOSPHATAEMIA [None]
